FAERS Safety Report 8415655-4 (Version None)
Quarter: 2012Q2

REPORT INFORMATION
  Report Type: 
  Country: None (occurrence: None)
  Receive Date: 20120606
  Receipt Date: 20120531
  Transmission Date: 20120825
  Serious: Yes (Hospitalization, Other)
  Sender: FDA-Public Use
  Company Number: PHHY2012MX045428

PATIENT
  Sex: Male

DRUGS (2)
  1. DIOVAN HCT [Suspect]
     Indication: HYPERTENSION
     Dosage: 1 DF (160 MG VALS AND 12.5 MG HYDRO) DAILY
     Dates: start: 20120101, end: 20120501
  2. INSULIN [Concomitant]
     Indication: TYPE 1 DIABETES MELLITUS
     Dosage: 30 IU, UNK

REACTIONS (18)
  - CHOKING [None]
  - PANCREATITIS [None]
  - GASTRITIS [None]
  - BLOOD GLUCOSE INCREASED [None]
  - PULMONARY OEDEMA [None]
  - DYSPNOEA [None]
  - CARDIAC MURMUR [None]
  - ABDOMINAL PAIN UPPER [None]
  - VISION BLURRED [None]
  - CHEST PAIN [None]
  - VOMITING [None]
  - SYNCOPE [None]
  - DIARRHOEA [None]
  - RENAL DISORDER [None]
  - MALAISE [None]
  - INFARCTION [None]
  - BLOOD CHOLESTEROL INCREASED [None]
  - ANAEMIA [None]
